FAERS Safety Report 11310065 (Version 2)
Quarter: 2015Q4

REPORT INFORMATION
  Report Type: Spontaneous
  Country: JP (occurrence: JP)
  Receive Date: 20150724
  Receipt Date: 20151006
  Transmission Date: 20160304
  Serious: Yes (Hospitalization, Other)
  Sender: FDA-Public Use
  Company Number: JP-AMGEN-JPNSP2015061417

PATIENT
  Age: 71 Year
  Sex: Male

DRUGS (1)
  1. RANMARK [Suspect]
     Active Substance: DENOSUMAB
     Indication: PRODUCT USED FOR UNKNOWN INDICATION
     Dosage: 120 ML, Q4WK
     Route: 058
     Dates: start: 20150606

REACTIONS (2)
  - Osteonecrosis of jaw [Unknown]
  - Hypocalcaemia [Recovered/Resolved]
